FAERS Safety Report 16995903 (Version 7)
Quarter: 2020Q2

REPORT INFORMATION
  Report Type: Spontaneous
  Country: US (occurrence: US)
  Receive Date: 20191105
  Receipt Date: 20200427
  Transmission Date: 20200713
  Serious: No
  Sender: FDA-Public Use
  Company Number: US-PFIZER INC-2019474502

PATIENT
  Age: 67 Year
  Sex: Female
  Weight: 49.9 kg

DRUGS (6)
  1. RETACRIT [Suspect]
     Active Substance: EPOETIN ALFA-EPBX
     Indication: NEPHROGENIC ANAEMIA
     Dosage: 4000 IU, WEEKLY (ONCE PER WEEK FOR THREE MONTHS)
     Route: 058
  2. RETACRIT [Suspect]
     Active Substance: EPOETIN ALFA-EPBX
     Dosage: 10000 IU, 2X/WEEK (FREQUENCY: TWICE A WEEK FOR 4 WEEKS 8 FOR 1 MONTH)
  3. RETACRIT [Suspect]
     Active Substance: EPOETIN ALFA-EPBX
     Indication: MINERAL SUPPLEMENTATION
     Dosage: 40000 IU, 2X/WEEK (TWICE A WEEK FOR 4 WEEKS)
  4. RETACRIT [Suspect]
     Active Substance: EPOETIN ALFA-EPBX
     Indication: NEPHROPATHY
     Dosage: 4 IU, WEEKLY (4 UNITS PER MONTH, ONE EVERY WEEK, FOR THREE MONTHS)
  5. RETACRIT [Suspect]
     Active Substance: EPOETIN ALFA-EPBX
     Indication: ANAEMIA
     Dosage: 4000 IU, 2X/WEEK
     Dates: start: 201910
  6. RETACRIT [Suspect]
     Active Substance: EPOETIN ALFA-EPBX
     Dosage: 10000 IU/ML(10,000 UNITS EVERY 2 WEEKS X 1MTH)

REACTIONS (5)
  - Blood count abnormal [Not Recovered/Not Resolved]
  - Product use issue [Unknown]
  - Therapeutic product effect incomplete [Not Recovered/Not Resolved]
  - Off label use [Unknown]
  - Product dose omission [Unknown]

NARRATIVE: CASE EVENT DATE: 201910
